FAERS Safety Report 13770492 (Version 1)
Quarter: 2017Q3

REPORT INFORMATION
  Report Type: Spontaneous
  Country: US (occurrence: US)
  Receive Date: 20170720
  Receipt Date: 20170720
  Transmission Date: 20171127
  Serious: Yes (Disabling)
  Sender: FDA-Public Use
  Company Number: None

PATIENT
  Age: 56 Year
  Sex: Female

DRUGS (9)
  1. LYRICA [Suspect]
     Active Substance: PREGABALIN
     Indication: CEREBROVASCULAR ACCIDENT
     Route: 048
     Dates: start: 20160601, end: 20160831
  2. VITAMIN D3 [Concomitant]
     Active Substance: CHOLECALCIFEROL
  3. POTASSIUM [Concomitant]
     Active Substance: POTASSIUM
  4. BAYER 81MG LOW DOSE [Concomitant]
  5. TRIAMTERENE. [Concomitant]
     Active Substance: TRIAMTERENE
  6. TRAMADOL. [Concomitant]
     Active Substance: TRAMADOL
  7. LYRICA [Suspect]
     Active Substance: PREGABALIN
     Indication: NEURALGIA
     Route: 048
     Dates: start: 20160601, end: 20160831
  8. GABAPENTIN. [Concomitant]
     Active Substance: GABAPENTIN
  9. IBUPROFEN. [Concomitant]
     Active Substance: IBUPROFEN

REACTIONS (3)
  - Feeling abnormal [None]
  - Weight decreased [None]
  - Lack of satiety [None]

NARRATIVE: CASE EVENT DATE: 20160831
